FAERS Safety Report 18882664 (Version 2)
Quarter: 2021Q1

REPORT INFORMATION
  Report Type: Spontaneous
  Country: DE (occurrence: DE)
  Receive Date: 20210211
  Receipt Date: 20210224
  Transmission Date: 20210420
  Serious: Yes (Death, Life-Threatening)
  Sender: FDA-Public Use
  Company Number: DE-ELI_LILLY_AND_COMPANY-DE202102002952

PATIENT
  Sex: Female
  Weight: 65 kg

DRUGS (9)
  1. MORPHINE [Concomitant]
     Active Substance: MORPHINE
     Indication: ANXIOLYTIC THERAPY
  2. BAMLANIVIMAB. [Suspect]
     Active Substance: BAMLANIVIMAB
     Indication: COVID-19
     Dosage: 700 MG, SINGLE
     Route: 042
     Dates: start: 20210203, end: 20210203
  3. ERYTHROCYTES [Concomitant]
     Active Substance: HUMAN RED BLOOD CELL
  4. MORPHINE [Concomitant]
     Active Substance: MORPHINE
     Indication: DYSPNOEA
  5. LORAZEPAM. [Concomitant]
     Active Substance: LORAZEPAM
     Indication: DYSPNOEA
     Route: 060
  6. CANDESARTAN. [Concomitant]
     Active Substance: CANDESARTAN
     Indication: HYPERTENSION
  7. NOREPINEPHRINE. [Concomitant]
     Active Substance: NOREPINEPHRINE
     Indication: HYPOTONIC-HYPORESPONSIVE EPISODE
  8. TAZOBAC [PIPERACILLIN SODIUM;TAZOBACTAM SODIU [Concomitant]
     Indication: INFECTION
  9. CLONIDINE. [Concomitant]
     Active Substance: CLONIDINE
     Indication: PANIC ATTACK

REACTIONS (6)
  - Cardiac arrest [Unknown]
  - Pulmonary haemorrhage [Unknown]
  - Pulmonary oedema [Fatal]
  - Pulseless electrical activity [Unknown]
  - Cardiogenic shock [Fatal]
  - Blood pressure decreased [Unknown]
